FAERS Safety Report 9175095 (Version 1)
Quarter: 2013Q1

REPORT INFORMATION
  Report Type: Report from Study
  Country: US (occurrence: US)
  Receive Date: 20130320
  Receipt Date: 20130320
  Transmission Date: 20140127
  Serious: Yes (Other)
  Sender: FDA-Public Use
  Company Number: US-ROCHE-1144142

PATIENT
  Age: 57 Year
  Sex: Female

DRUGS (7)
  1. PEGASYS [Suspect]
     Indication: CHRONIC HEPATITIS C
     Dosage: 180 MCG/KG
     Route: 065
     Dates: start: 20120330, end: 20130215
  2. PEGASYS [Suspect]
     Route: 065
     Dates: start: 20120314, end: 20130222
  3. TELAPREVIR [Suspect]
     Indication: CHRONIC HEPATITIS C
     Route: 048
     Dates: start: 20120314, end: 20120713
  4. RIBASPHERE [Suspect]
     Indication: CHRONIC HEPATITIS C
     Dosage: DIVIDED DOSE
     Route: 048
     Dates: start: 20120330
  5. RIBASPHERE [Suspect]
     Route: 048
     Dates: start: 20120314, end: 20130222
  6. ABILIFY [Concomitant]
     Indication: DEPRESSION
     Route: 048
     Dates: start: 20120508, end: 20121004
  7. CELEXA [Concomitant]
     Indication: DEPRESSION
     Route: 048
     Dates: start: 20120327, end: 20121216

REACTIONS (9)
  - Anxiety [Recovered/Resolved]
  - Restlessness [Unknown]
  - Gait disturbance [Unknown]
  - Rash [Recovering/Resolving]
  - Skin discolouration [Unknown]
  - Erythema [Not Recovered/Not Resolved]
  - Hepatitis C [Unknown]
  - Tardive dyskinesia [Recovered/Resolved]
  - Skin hyperpigmentation [Not Recovered/Not Resolved]
